FAERS Safety Report 9069020 (Version 1)
Quarter: 2013Q1

REPORT INFORMATION
  Report Type: Spontaneous
  Country: GB (occurrence: None)
  Receive Date: 20130122
  Receipt Date: 20130122
  Transmission Date: 20140127
  Serious: Yes (Hospitalization)
  Sender: FDA-Public Use
  Company Number: 1560270

PATIENT
  Age: 31 Year
  Sex: Female

DRUGS (2)
  1. MIDAZOLAM [Suspect]
     Indication: AGITATION
     Dosage: 7.5 MG MILLIGRAM (S), AS NECESSARY
     Dates: start: 20120812, end: 20120812
  2. OMEPRAZOLE [Concomitant]

REACTIONS (4)
  - Heart rate irregular [None]
  - Sinus arrhythmia [None]
  - Bradycardia [None]
  - Hypotension [None]
